FAERS Safety Report 25455530 (Version 6)
Quarter: 2025Q3

REPORT INFORMATION
  Report Type: Spontaneous
  Country: US (occurrence: US)
  Receive Date: 20250619
  Receipt Date: 20250924
  Transmission Date: 20251020
  Serious: Yes (Other)
  Sender: IPSEN BIOPHARMACEUTICALS, INC.
  Company Number: US-IPSEN Group, Research and Development-2025-14195

PATIENT
  Age: 18 Year
  Sex: Male
  Weight: 69 kg

DRUGS (18)
  1. TAZVERIK [Suspect]
     Active Substance: TAZEMETOSTAT HYDROBROMIDE
     Indication: Malignant connective tissue neoplasm
     Route: 048
     Dates: start: 20241120
  2. TAZVERIK [Suspect]
     Active Substance: TAZEMETOSTAT HYDROBROMIDE
     Indication: Soft tissue sarcoma
  3. ADVIL [Concomitant]
     Active Substance: IBUPROFEN
  4. ATIVAN [Concomitant]
     Active Substance: LORAZEPAM
  5. BACTRIM [Concomitant]
     Active Substance: SULFAMETHOXAZOLE\TRIMETHOPRIM
  6. DEXAMETHASONE [Concomitant]
     Active Substance: DEXAMETHASONE
  7. DIPHENHYDRAMINE [Concomitant]
     Active Substance: DIPHENHYDRAMINE
  8. DOXORUBICIN [Concomitant]
     Active Substance: DOXORUBICIN
  9. FAMOTIDINE [Concomitant]
     Active Substance: FAMOTIDINE
  10. FULPHILA [Concomitant]
     Active Substance: PEGFILGRASTIM-JMDB
  11. LIDOCAINE AND PRILOCAINE [Concomitant]
     Active Substance: LIDOCAINE\PRILOCAINE
  12. OMEPRAZOLE [Concomitant]
     Active Substance: OMEPRAZOLE
  13. ONDANSETRON [Concomitant]
     Active Substance: ONDANSETRON
  14. OPDIVO [Concomitant]
     Active Substance: NIVOLUMAB
  15. SERTRALINE [Concomitant]
     Active Substance: SERTRALINE HYDROCHLORIDE
  16. TRIMETHOPRIM [Concomitant]
     Active Substance: TRIMETHOPRIM
  17. TYLENOL [Concomitant]
     Active Substance: ACETAMINOPHEN
  18. YERVOY [Concomitant]
     Active Substance: IPILIMUMAB

REACTIONS (6)
  - Clostridium difficile infection [Recovering/Resolving]
  - Norovirus infection [Recovering/Resolving]
  - Diarrhoea [Recovering/Resolving]
  - Abdominal pain [Recovering/Resolving]
  - Product dose omission issue [Unknown]
  - Product dose omission in error [Unknown]
